FAERS Safety Report 13149450 (Version 1)
Quarter: 2017Q1

REPORT INFORMATION
  Report Type: Spontaneous
  Country: FR (occurrence: FR)
  Receive Date: 20170125
  Receipt Date: 20170125
  Transmission Date: 20170428
  Serious: Yes (Other)
  Sender: FDA-Public Use
  Company Number: FR-CELLTRION HEALTHCARE HUNGARY KFT-2017FR000755

PATIENT

DRUGS (4)
  1. INFLECTRA [Suspect]
     Active Substance: INFLIXIMAB-DYYB
     Indication: ANKYLOSING SPONDYLITIS
     Dosage: 42 INFUSIONS IN TOTAL
     Dates: start: 200812, end: 20151008
  2. INFLECTRA [Suspect]
     Active Substance: INFLIXIMAB-DYYB
     Dosage: 300 MG, SINGLE
     Route: 065
     Dates: start: 20151217, end: 20151217
  3. HUMIRA [Suspect]
     Active Substance: ADALIMUMAB
     Indication: ANKYLOSING SPONDYLITIS
     Dosage: 40 MG,  EVERY 2 WEEKS
     Route: 058
     Dates: start: 201602, end: 20160422
  4. REMICADE [Suspect]
     Active Substance: INFLIXIMAB
     Indication: ANKYLOSING SPONDYLITIS
     Dosage: 300 MG, ONE ADMINISTRATION EACH TEN WEEKS
     Dates: start: 200812, end: 20151008

REACTIONS (2)
  - Treatment failure [Unknown]
  - Detachment of macular retinal pigment epithelium [Recovering/Resolving]

NARRATIVE: CASE EVENT DATE: 201603
